FAERS Safety Report 9353134 (Version 1)
Quarter: 2013Q2

REPORT INFORMATION
  Report Type: Spontaneous
  Country: US (occurrence: None)
  Receive Date: 20130617
  Receipt Date: 20130617
  Transmission Date: 20140414
  Serious: No
  Sender: FDA-Public Use
  Company Number: None

PATIENT
  Age: 83 Year
  Sex: Female
  Weight: 87.54 kg

DRUGS (1)
  1. PROLIA 60 MG SQ EVERY 6 MONTHS AMGEN [Suspect]
     Indication: OSTEOPOROSIS
     Dosage: 60 MG X1 SQ
     Route: 058
     Dates: start: 20130320

REACTIONS (1)
  - Polymyalgia rheumatica [None]
